FAERS Safety Report 4579741-1 (Version None)
Quarter: 2005Q1

REPORT INFORMATION
  Report Type: 
  Country: None (occurrence: None)
  Receive Date: 20050210
  Receipt Date: 20050210
  Transmission Date: 20050727
  Serious: No
  Sender: FDA-Public Use
  Company Number: None

PATIENT

DRUGS (2)
  1. BETADINE [Suspect]
     Indication: PREOPERATIVE CARE
  2. POVIDONE IODINE [Suspect]
     Indication: PREOPERATIVE CARE

REACTIONS (2)
  - PROCEDURAL SITE REACTION [None]
  - RASH [None]
